FAERS Safety Report 7904214-5 (Version None)
Quarter: 2011Q4

REPORT INFORMATION
  Report Type: 
  Country: None (occurrence: None)
  Receive Date: 20111109
  Receipt Date: 20111028
  Transmission Date: 20120403
  Serious: Yes (Hospitalization)
  Sender: FDA-Public Use
  Company Number: DE-ROCHE-676769

PATIENT
  Sex: Male
  Weight: 76 kg

DRUGS (15)
  1. ACETYLSALICYLIC ACID SRT [Concomitant]
  2. NIFEDIPINE [Concomitant]
  3. SIMVASTATIN [Concomitant]
  4. ALLOPURINOL [Concomitant]
  5. CALCIUM ACETATE [Concomitant]
  6. CALCITRIOL [Concomitant]
  7. COLECALCIFEROL [Concomitant]
     Dosage: TDD: 700 IE
  8. VERAPAMIL [Concomitant]
  9. FERRLECIT [Concomitant]
  10. METOPROLOL [Concomitant]
  11. NOVAMINSULFON [Concomitant]
  12. DOXAZOSIN MESYLATE [Concomitant]
  13. SEVELAMER [Concomitant]
  14. MIRCERA [Suspect]
     Indication: NEPHROGENIC ANAEMIA
     Dosage: LAST DOSE PRIOR TO SAE: 16 NOV 2009. FORM: PRE FILLED SYRINGE.STOPPED TEMPORARILY.
     Route: 042
     Dates: start: 20090415, end: 20091216
  15. OMEPRAZOLE [Concomitant]

REACTIONS (1)
  - RETROGRADE AMNESIA [None]
